FAERS Safety Report 4732939-1 (Version None)
Quarter: 2005Q3

REPORT INFORMATION
  Report Type: 
  Country: None (occurrence: None)
  Receive Date: 20050803
  Receipt Date: 20050613
  Transmission Date: 20060218
  Serious: No
  Sender: FDA-Public Use
  Company Number: US-GLAXOSMITHKLINE-A0562425A

PATIENT
  Sex: Female

DRUGS (14)
  1. AVANDAMET [Suspect]
     Route: 048
     Dates: start: 20041101, end: 20050201
  2. AVANDIA [Suspect]
     Dosage: 4MG PER DAY
     Route: 048
     Dates: start: 20050223
  3. FORTAMET [Suspect]
     Dosage: 1000MG PER DAY
     Route: 048
     Dates: start: 20050223, end: 20050315
  4. ZOLOFT [Concomitant]
  5. LIPITOR [Concomitant]
  6. AVALIDE [Concomitant]
  7. ASPIRIN [Concomitant]
  8. SINGULAIR [Concomitant]
  9. SPIRIVA [Concomitant]
  10. IMITREX [Concomitant]
  11. MOBIC [Concomitant]
  12. LORTAB [Concomitant]
  13. CARISOPRODOL [Concomitant]
     Route: 065
  14. PERCOCET [Concomitant]

REACTIONS (2)
  - PRURITUS [None]
  - URTICARIA [None]
